FAERS Safety Report 7963892-5 (Version None)
Quarter: 2011Q4

REPORT INFORMATION
  Report Type: 
  Country: None (occurrence: None)
  Receive Date: 20111208
  Receipt Date: 20100408
  Transmission Date: 20120403
  Serious: No
  Sender: FDA-Public Use
  Company Number: US-BAYER-201018984NA

PATIENT
  Sex: Female

DRUGS (1)
  1. CLIMARA [Suspect]
     Dosage: 50 MCG/24HR, UNK
     Route: 062
     Dates: start: 20020101

REACTIONS (2)
  - HOT FLUSH [None]
  - PRODUCT ADHESION ISSUE [None]
